FAERS Safety Report 24718073 (Version 1)
Quarter: 2024Q4

REPORT INFORMATION
  Report Type: Report from Study
  Country: CA (occurrence: CA)
  Receive Date: 20241210
  Receipt Date: 20241210
  Transmission Date: 20250114
  Serious: Yes (Other)
  Sender: SANDOZ
  Company Number: CA-002147023-NVSC2023CA014218

PATIENT
  Age: 67 Year
  Sex: Female

DRUGS (1)
  1. ERELZI [Suspect]
     Active Substance: ETANERCEPT-SZZS
     Indication: Psoriatic arthropathy
     Dosage: 50 MG, QW (02462850)
     Route: 058
     Dates: start: 20221111, end: 20230116

REACTIONS (3)
  - Lung neoplasm malignant [Recovered/Resolved]
  - Pulmonary mass [Unknown]
  - Arthralgia [Unknown]

NARRATIVE: CASE EVENT DATE: 20230117
